FAERS Safety Report 9455409 (Version 1)
Quarter: 2013Q3

REPORT INFORMATION
  Report Type: Spontaneous
  Country: US (occurrence: US)
  Receive Date: 20130813
  Receipt Date: 20130813
  Transmission Date: 20140515
  Serious: Yes (Other)
  Sender: FDA-Public Use
  Company Number: DZ-ASTRAZENECA-2013SE61381

PATIENT
  Sex: 0

DRUGS (1)
  1. BRILINTA [Suspect]
     Route: 048
     Dates: start: 2013

REACTIONS (2)
  - Haemorrhage [Unknown]
  - Off label use [Unknown]
